FAERS Safety Report 9967208 (Version 2)
Quarter: 2014Q1

REPORT INFORMATION
  Report Type: Report from Study
  Country: US (occurrence: US)
  Receive Date: 20140305
  Receipt Date: 20140305
  Transmission Date: 20141002
  Serious: No
  Sender: FDA-Public Use
  Company Number: US-ABBVIE-13P-163-1088241-00

PATIENT
  Age: 56 Year
  Sex: Female
  Weight: 79 kg

DRUGS (11)
  1. HUMIRA [Suspect]
     Indication: PSORIASIS
     Route: 058
     Dates: start: 2007, end: 200809
  2. HUMIRA [Suspect]
     Route: 058
     Dates: start: 2008, end: 201307
  3. HUMIRA [Suspect]
     Route: 058
     Dates: start: 20130816, end: 20130816
  4. HUMIRA [Suspect]
     Route: 058
     Dates: start: 20130823
  5. FENOFIBRATE [Suspect]
     Indication: BLOOD CHOLESTEROL INCREASED
     Dates: end: 201307
  6. FENOFIBRATE [Suspect]
     Dates: start: 201308
  7. METHOTREXATE [Concomitant]
     Indication: PSORIASIS
  8. ATENOLOL [Concomitant]
     Indication: HYPERTENSION
  9. LEVOTHYROXINE [Concomitant]
     Indication: PRODUCT USED FOR UNKNOWN INDICATION
  10. VITAMIN B12 [Concomitant]
     Indication: PRODUCT USED FOR UNKNOWN INDICATION
  11. IBUPROFEN [Concomitant]
     Indication: PAIN

REACTIONS (1)
  - Liver function test abnormal [Recovered/Resolved]
